FAERS Safety Report 23708450 (Version 4)
Quarter: 2024Q4

REPORT INFORMATION
  Report Type: Spontaneous
  Country: US (occurrence: US)
  Receive Date: 20240404
  Receipt Date: 20241022
  Transmission Date: 20250114
  Serious: No
  Sender: SANOFI AVENTIS
  Company Number: US-SA-SAC20240401001107

PATIENT
  Age: 39 Year
  Sex: Female

DRUGS (4)
  1. DUPIXENT [Suspect]
     Active Substance: DUPILUMAB
     Indication: Asthma
     Dosage: 600 MG, 1X
     Route: 058
     Dates: start: 202402, end: 202402
  2. DUPIXENT [Suspect]
     Active Substance: DUPILUMAB
     Indication: Eosinophilic oesophagitis
     Dosage: 300 MG, QOW
     Route: 058
     Dates: start: 2024
  3. DUPIXENT [Suspect]
     Active Substance: DUPILUMAB
     Indication: Dermatitis atopic
  4. DUPIXENT [Suspect]
     Active Substance: DUPILUMAB
     Indication: Eczema

REACTIONS (13)
  - Cough [Unknown]
  - Premenstrual syndrome [Unknown]
  - Condition aggravated [Unknown]
  - Abdominal distension [Unknown]
  - Diarrhoea [Unknown]
  - Breast tenderness [Unknown]
  - Swelling [Unknown]
  - Feeling hot [Unknown]
  - Erythema [Unknown]
  - Vision blurred [Unknown]
  - Injection site rash [Unknown]
  - Injection site erythema [Unknown]
  - Eczema [Recovering/Resolving]

NARRATIVE: CASE EVENT DATE: 20240101
